FAERS Safety Report 9185741 (Version 1)
Quarter: 2012Q4

REPORT INFORMATION
  Report Type: 
  Country: US (occurrence: US)
  Receive Date: 20121101
  Receipt Date: 20121101
  Transmission Date: 20130627
  Serious: No
  Sender: FDA-Public Use
  Company Number: US-009507513-1210USA004390

PATIENT
  Age: 57 None
  Sex: Female
  Weight: 84.81 kg

DRUGS (5)
  1. VICTRELIS [Suspect]
     Dosage: 4 DF, tid
     Route: 048
  2. PEG-INTRON [Suspect]
     Dosage: 150 Microgram / 0.5 ml, qw(4SYR/PK)
     Route: 058
  3. RIBAVIRIN [Suspect]
     Dosage: UNK
  4. CENTRUM (MINERALS (UNSPECIFIED) (+) VITAMINS (UNSPECIFIED)) [Concomitant]
  5. METOPROLOL [Concomitant]

REACTIONS (6)
  - Cough [Unknown]
  - Increased upper airway secretion [Unknown]
  - Pain [Unknown]
  - Dysgeusia [Unknown]
  - Fatigue [Unknown]
  - Abdominal discomfort [Unknown]
